FAERS Safety Report 4452728-5 (Version None)
Quarter: 2004Q3

REPORT INFORMATION
  Report Type: 
  Country: None (occurrence: None)
  Receive Date: 20040813
  Receipt Date: 20040610
  Transmission Date: 20050211
  Serious: No
  Sender: FDA-Public Use
  Company Number: S04-USA-03638-01

PATIENT
  Age: 82 Year
  Sex: Male

DRUGS (9)
  1. NAMENDA [Suspect]
     Indication: DEMENTIA
     Dosage: 5 MG QD PO
     Route: 048
     Dates: start: 20040525, end: 20040531
  2. NAMENDA [Suspect]
     Indication: DEMENTIA
     Dosage: 10 MG QD PO
     Route: 048
     Dates: start: 20040601, end: 20040607
  3. NAMENDA [Suspect]
     Indication: DEMENTIA
     Dosage: 15 MG QD PO
     Route: 048
     Dates: start: 20040608
  4. ARICEPT [Concomitant]
  5. ZOCOR [Concomitant]
  6. DILTIAZEM [Concomitant]
  7. VIOXX [Concomitant]
  8. ATROVENT [Concomitant]
  9. ALBUTEROL [Concomitant]

REACTIONS (1)
  - ASTHMA [None]
